FAERS Safety Report 7491578-2 (Version None)
Quarter: 2011Q2

REPORT INFORMATION
  Report Type: 
  Country: None (occurrence: None)
  Receive Date: 20110519
  Receipt Date: 20110510
  Transmission Date: 20111010
  Serious: Yes (Other)
  Sender: FDA-Public Use
  Company Number: US-JNJFOC-20110505376

PATIENT
  Age: 19 Year
  Sex: Female

DRUGS (1)
  1. RENOVA [Suspect]
     Indication: SKIN WRINKLING
     Route: 061

REACTIONS (1)
  - VISUAL IMPAIRMENT [None]
